FAERS Safety Report 22288784 (Version 1)
Quarter: 2023Q2

REPORT INFORMATION
  Report Type: Report from Study
  Country: US (occurrence: US)
  Receive Date: 20230505
  Receipt Date: 20230505
  Transmission Date: 20230721
  Serious: Yes (Hospitalization)
  Sender: FDA-Public Use
  Company Number: US-ABBVIE-4740276

PATIENT
  Age: 42 Year
  Sex: Male

DRUGS (6)
  1. VENETOCLAX [Suspect]
     Active Substance: VENETOCLAX
     Indication: Acute myeloid leukaemia
     Dosage: LAST DOSE PRIOR TO SAE 16 APR 2023
     Route: 048
  2. FLUDARABINE [Concomitant]
     Active Substance: FLUDARABINE PHOSPHATE
     Indication: Acute myeloid leukaemia
     Dosage: LAST DOSE PRIOR TO SAE 22 APR 2023
     Route: 042
  3. CYTARABINE [Concomitant]
     Active Substance: CYTARABINE
     Indication: Acute myeloid leukaemia
     Dosage: LAST DOSE PRIOR TO SAE 11 APR 2023
     Route: 042
  4. IDARUBICIN [Concomitant]
     Active Substance: IDARUBICIN
     Indication: Acute myeloid leukaemia
     Dosage: LAST DOSE PRIOR TO SAE 11 APR 2023
     Route: 042
  5. FILGRASTIM [Concomitant]
     Active Substance: FILGRASTIM
     Indication: Acute myeloid leukaemia
     Dosage: LAST DOSE PRIOR TO SAE 11 APR 2023
     Route: 058
  6. PEGFILGRASTIM [Concomitant]
     Active Substance: PEGFILGRASTIM
     Indication: Acute myeloid leukaemia
     Dosage: LAST DOSE PRIOR TO SAE 13 APR 2023
     Route: 058

REACTIONS (1)
  - Parainfluenzae virus infection [Recovered/Resolved]

NARRATIVE: CASE EVENT DATE: 20230423
